FAERS Safety Report 17687626 (Version 1)
Quarter: 2020Q2

REPORT INFORMATION
  Report Type: Spontaneous
  Country: US (occurrence: US)
  Receive Date: 20200421
  Receipt Date: 20200421
  Transmission Date: 20200714
  Serious: Yes (Disabling, Other)
  Sender: FDA-Public Use
  Company Number: US-AUROBINDO-AUR-APL-2020-015250

PATIENT
  Age: 59 Year
  Sex: Male
  Weight: 113.37 kg

DRUGS (2)
  1. SUMATRIPTAN TABLETS 25MG [Suspect]
     Active Substance: SUMATRIPTAN
     Indication: MIGRAINE
     Dosage: 2 DOSAGE FORM, DAILY
     Route: 048
     Dates: start: 20200317
  2. SUMATRIPTAN TABLETS 25MG [Suspect]
     Active Substance: SUMATRIPTAN
     Indication: CLUSTER HEADACHE
     Dosage: 2 DOSAGE FORM, DAILY
     Route: 065
     Dates: start: 20200318

REACTIONS (12)
  - Exophthalmos [Unknown]
  - Feeling abnormal [Unknown]
  - Drug ineffective [Unknown]
  - Head discomfort [Unknown]
  - Migraine [Unknown]
  - Suspected product quality issue [Unknown]
  - Visual impairment [Unknown]
  - Bedridden [Unknown]
  - Vomiting [Unknown]
  - Dizziness [Unknown]
  - Product substitution issue [Unknown]
  - Fall [Unknown]
